FAERS Safety Report 4866867-8 (Version None)
Quarter: 2005Q4

REPORT INFORMATION
  Report Type: 
  Country: None (occurrence: None)
  Receive Date: 20051222
  Receipt Date: 20051209
  Transmission Date: 20060501
  Serious: Yes (Hospitalization)
  Sender: FDA-Public Use
  Company Number: DE200512001560

PATIENT
  Age: 70 Year
  Sex: Female

DRUGS (7)
  1. FORTEO [Suspect]
     Indication: OSTEOPOROSIS
     Dosage: 20 UG, DAILY (1/D),
     Dates: start: 20051103, end: 20051103
  2. FORTEO PEN (250MCG/ML) (FORTEO PEN 250MCG/ML (3ML)) PEN, DISPOSABLE [Concomitant]
  3. DIGITALIS CAP [Concomitant]
  4. CALCIMAGON (CALCIUM CARBONATE) [Concomitant]
  5. ALDACTONE [Concomitant]
  6. CORDAREX (AMIODARONE HYDROCHLORIDE) [Concomitant]
  7. VESDIL /GFR/ (RAMIPRIL) [Concomitant]

REACTIONS (3)
  - CARDIAC FLUTTER [None]
  - HYPERSENSITIVITY [None]
  - SWOLLEN TONGUE [None]
